FAERS Safety Report 12611021 (Version 3)
Quarter: 2016Q3

REPORT INFORMATION
  Report Type: Spontaneous
  Country: US (occurrence: US)
  Receive Date: 20160801
  Receipt Date: 20160914
  Transmission Date: 20161109
  Serious: No
  Sender: FDA-Public Use
  Company Number: US-PFIZER INC-2016366907

PATIENT
  Age: 55 Year
  Sex: Male
  Weight: 86 kg

DRUGS (4)
  1. ANASTROZOLE. [Concomitant]
     Active Substance: ANASTROZOLE
     Indication: BLOOD OESTROGEN ABNORMAL
     Dosage: 0.5 MG 1 CAPSULE BY MOUTH TWICE WEEKLY
     Route: 048
     Dates: start: 201602, end: 201604
  2. DEPO-TESTOSTERONE [Suspect]
     Active Substance: TESTOSTERONE CYPIONATE
     Indication: BLOOD TESTOSTERONE DECREASED
     Dosage: 1CC PER WEEK INJECTION INTRAMUSCULAR
     Route: 030
     Dates: start: 201602, end: 201604
  3. VITAMIN B12 [Concomitant]
     Active Substance: CYANOCOBALAMIN
     Indication: NUTRITIONAL SUPPLEMENTATION
     Dosage: 250 IU TWICE WEEKLY SUBCUTANEOUS INJECTION
     Route: 058
     Dates: start: 201602, end: 201604
  4. HUMAN CHORIONIC GONADOTROPIN [Concomitant]
     Active Substance: GONADOTROPHIN, CHORIONIC
     Indication: BLOOD TESTOSTERONE DECREASED
     Dosage: 500 IU TWICE WEEKLY SUBCUTANEOUS INJECTION
     Route: 058
     Dates: start: 201602, end: 201604

REACTIONS (1)
  - Drug ineffective [Unknown]

NARRATIVE: CASE EVENT DATE: 201605
